FAERS Safety Report 4684920-9 (Version None)
Quarter: 2005Q2

REPORT INFORMATION
  Report Type: 
  Country: None (occurrence: None)
  Receive Date: 20050606
  Receipt Date: 20050606
  Transmission Date: 20051028
  Serious: Yes (Hospitalization)
  Sender: FDA-Public Use
  Company Number: None

PATIENT
  Age: 51 Year
  Sex: Male
  Weight: 70.7611 kg

DRUGS (2)
  1. WARFARIN [Suspect]
     Indication: HEART VALVE REPLACEMENT
  2. WARFARIN [Suspect]
     Indication: MITRAL VALVE REPLACEMENT

REACTIONS (3)
  - DYSPNOEA [None]
  - FAECES DISCOLOURED [None]
  - GASTROINTESTINAL HAEMORRHAGE [None]
